FAERS Safety Report 19410504 (Version 1)
Quarter: 2021Q2

REPORT INFORMATION
  Report Type: Spontaneous
  Country: US (occurrence: US)
  Receive Date: 20210611
  Receipt Date: 20210611
  Transmission Date: 20210717
  Serious: No
  Sender: FDA-Public Use
  Company Number: None

PATIENT
  Age: 18 Year
  Sex: Male

DRUGS (1)
  1. LUPRON DEPOT?PED [Suspect]
     Active Substance: LEUPROLIDE ACETATE
     Indication: TRANS-SEXUALISM
     Dosage: OTHER FREQUENCY:OTHER;?
     Route: 030
     Dates: start: 202106

REACTIONS (1)
  - Off label use [None]

NARRATIVE: CASE EVENT DATE: 20210611
